FAERS Safety Report 7916656-2 (Version None)
Quarter: 2011Q4

REPORT INFORMATION
  Report Type: 
  Country: None (occurrence: None)
  Receive Date: 20111116
  Receipt Date: 20111111
  Transmission Date: 20120403
  Serious: Yes (Hospitalization, Other)
  Sender: FDA-Public Use
  Company Number: DK-JNJFOC-20110907827

PATIENT

DRUGS (19)
  1. PREDNISONE TAB [Suspect]
     Route: 065
     Dates: start: 20060901
  2. ZEVALIN [Suspect]
     Route: 065
     Dates: start: 20060901, end: 20060901
  3. DOXORUBICIN HCL [Suspect]
     Indication: B-CELL LYMPHOMA RECURRENT
     Route: 042
     Dates: start: 20060901
  4. CYCLOPHOSPHAMIDE [Suspect]
     Route: 065
     Dates: start: 20060215
  5. PREDNISONE TAB [Suspect]
     Indication: B-CELL LYMPHOMA RECURRENT
     Route: 065
     Dates: start: 20080115
  6. PREDNISONE TAB [Suspect]
     Route: 065
     Dates: start: 20060215
  7. RITUXIMAB [Suspect]
     Route: 065
     Dates: start: 20050110
  8. YTRACIS [Suspect]
     Indication: B-CELL LYMPHOMA RECURRENT
     Route: 065
     Dates: start: 20060901, end: 20060901
  9. RITUXIMAB [Suspect]
     Route: 065
     Dates: start: 20060215
  10. RITUXIMAB [Suspect]
     Indication: B-CELL LYMPHOMA RECURRENT
     Route: 065
     Dates: start: 20080115
  11. FLUDARABINE PHOSPHATE [Concomitant]
     Indication: B-CELL LYMPHOMA RECURRENT
     Route: 065
     Dates: start: 20050110
  12. BENDAMUSTINE [Concomitant]
     Indication: B-CELL LYMPHOMA RECURRENT
     Route: 065
     Dates: start: 20080115
  13. CYCLOPHOSPHAMIDE [Suspect]
     Indication: B-CELL LYMPHOMA RECURRENT
     Route: 065
     Dates: start: 20060901
  14. RITUXIMAB [Suspect]
     Route: 065
     Dates: start: 20060901
  15. VINCRISTINE [Suspect]
     Route: 065
     Dates: start: 20060901
  16. YTRACIS [Suspect]
     Route: 065
     Dates: start: 20060215, end: 20060215
  17. ZEVALIN [Suspect]
     Indication: B-CELL LYMPHOMA RECURRENT
     Route: 065
     Dates: start: 20060215
  18. VINCRISTINE [Suspect]
     Indication: B-CELL LYMPHOMA RECURRENT
     Route: 065
     Dates: start: 20060215
  19. CYCLOPHOSPHAMIDE [Suspect]
     Route: 065
     Dates: start: 20050110

REACTIONS (2)
  - MYELODYSPLASTIC SYNDROME [None]
  - NEOPLASM MALIGNANT [None]
